FAERS Safety Report 4666196-1 (Version None)
Quarter: 2005Q2

REPORT INFORMATION
  Report Type: 
  Country: None (occurrence: None)
  Receive Date: 20050518
  Receipt Date: 20050510
  Transmission Date: 20051028
  Serious: Yes (Hospitalization)
  Sender: FDA-Public Use
  Company Number: 2005-05-0445

PATIENT
  Age: 48 Year
  Sex: Female

DRUGS (2)
  1. TEMODAL                                  LIKE TEMODAR [Suspect]
     Dosage: 200 MG X 5D/WK
  2. RADIATION THERAPY [Suspect]

REACTIONS (5)
  - ABDOMINAL PAIN UPPER [None]
  - GAMMA-GLUTAMYLTRANSFERASE INCREASED [None]
  - HOT FLUSH [None]
  - RASH [None]
  - TRANSAMINASES INCREASED [None]
